FAERS Safety Report 15905969 (Version 1)
Quarter: 2019Q1

REPORT INFORMATION
  Report Type: Report from Study
  Country: US (occurrence: US)
  Receive Date: 20190204
  Receipt Date: 20190204
  Transmission Date: 20190417
  Serious: Yes (Other)
  Sender: FDA-Public Use
  Company Number: US-JAZZ-2018-US-018047

PATIENT
  Age: 62 Year
  Sex: Female

DRUGS (14)
  1. FLUOXETINE HCL [Concomitant]
     Active Substance: FLUOXETINE HYDROCHLORIDE
  2. OMEPRAZOLE. [Concomitant]
     Active Substance: OMEPRAZOLE
  3. CARBAMAZEPINE. [Concomitant]
     Active Substance: CARBAMAZEPINE
  4. MODAFINIL. [Concomitant]
     Active Substance: MODAFINIL
  5. LAMOTRIGINE. [Concomitant]
     Active Substance: LAMOTRIGINE
  6. CLONAZEPAM. [Concomitant]
     Active Substance: CLONAZEPAM
  7. XYREM [Suspect]
     Active Substance: SODIUM OXYBATE
     Indication: NARCOLEPSY
     Dosage: 3 G, BID
     Route: 048
     Dates: start: 201811
  8. XYREM [Suspect]
     Active Substance: SODIUM OXYBATE
     Indication: CATAPLEXY
  9. BUSPIRONE HCL [Concomitant]
     Active Substance: BUSPIRONE HYDROCHLORIDE
  10. CYANOCOBALAMIN. [Concomitant]
     Active Substance: CYANOCOBALAMIN
  11. LIOTHYRONINE SODIUM. [Concomitant]
     Active Substance: LIOTHYRONINE SODIUM
  12. VITAMIN B12 [Concomitant]
     Active Substance: CYANOCOBALAMIN
  13. SYNTHROID [Concomitant]
     Active Substance: LEVOTHYROXINE SODIUM
  14. TOPIRAMATE. [Concomitant]
     Active Substance: TOPIRAMATE

REACTIONS (12)
  - Periorbital swelling [Not Recovered/Not Resolved]
  - Mood altered [Not Recovered/Not Resolved]
  - Peripheral swelling [Not Recovered/Not Resolved]
  - Enuresis [Unknown]
  - Wrong technique in product usage process [Unknown]
  - Fall [Unknown]
  - Somnambulism [Unknown]
  - Weight decreased [Unknown]
  - Disorientation [Not Recovered/Not Resolved]
  - Skin injury [Unknown]
  - Musculoskeletal chest pain [Unknown]
  - Confusional state [Not Recovered/Not Resolved]

NARRATIVE: CASE EVENT DATE: 2018
